FAERS Safety Report 11865571 (Version 2)
Quarter: 2016Q1

REPORT INFORMATION
  Report Type: Spontaneous
  Country: DE (occurrence: DE)
  Receive Date: 20151223
  Receipt Date: 20160114
  Transmission Date: 20160526
  Serious: Yes (Other)
  Sender: FDA-Public Use
  Company Number: DE-ALLERGAN-1526893US

PATIENT
  Age: 35 Year
  Sex: Female
  Weight: 50 kg

DRUGS (2)
  1. BOTOX [Suspect]
     Active Substance: ONABOTULINUMTOXINA
     Indication: BLADDER DISORDER
     Dosage: 300 UNITS, SINGLE
     Route: 043
     Dates: start: 201507, end: 201507
  2. BOTOX [Suspect]
     Active Substance: ONABOTULINUMTOXINA
     Dosage: 300 UNITS, SINGLE
     Route: 043
     Dates: start: 20151202, end: 20151202

REACTIONS (5)
  - Myalgia [Not Recovered/Not Resolved]
  - Asthenia [Unknown]
  - Off label use [Unknown]
  - Muscular weakness [Not Recovered/Not Resolved]
  - Paralysis [Unknown]

NARRATIVE: CASE EVENT DATE: 20151210
